FAERS Safety Report 9929474 (Version 4)
Quarter: 2014Q2

REPORT INFORMATION
  Report Type: Spontaneous
  Country: US (occurrence: US)
  Receive Date: 20140227
  Receipt Date: 20140403
  Transmission Date: 20141212
  Serious: Yes (Hospitalization)
  Sender: FDA-Public Use
  Company Number: US-GLAXOSMITHKLINE-A1062584A

PATIENT
  Age: 60 Year
  Sex: Female
  Weight: 100 kg

DRUGS (20)
  1. REQUIP [Suspect]
     Indication: NERVOUS SYSTEM DISORDER
     Dosage: 5MG AT NIGHT
     Route: 048
     Dates: start: 20081210
  2. VENTOLIN [Suspect]
     Indication: RESPIRATORY DISORDER
     Dosage: 90MCG UNKNOWN
     Route: 055
     Dates: start: 20111123
  3. ADVAIR HFA [Suspect]
     Indication: RESPIRATORY DISORDER
     Route: 055
     Dates: start: 20081210
  4. SYNTHROID [Concomitant]
  5. HUMALOG [Concomitant]
  6. POTASSIUM [Concomitant]
  7. LANTUS [Concomitant]
  8. LOSARTAN [Concomitant]
  9. COREG [Concomitant]
  10. SINGULAIR [Concomitant]
  11. CYMBALTA [Concomitant]
  12. SEROQUEL [Concomitant]
  13. VITAMIN B12 [Concomitant]
  14. KLONOPIN [Concomitant]
  15. COUMADIN [Concomitant]
  16. LASIX [Concomitant]
  17. NEURONTIN [Concomitant]
  18. RESTORIL [Concomitant]
  19. NEBULIZER TREATMENT [Concomitant]
  20. LISINOPRIL [Concomitant]

REACTIONS (2)
  - Dyspnoea [Recovered/Resolved]
  - Blood glucose abnormal [Recovered/Resolved]
